FAERS Safety Report 6988877-7 (Version None)
Quarter: 2010Q3

REPORT INFORMATION
  Report Type: 
  Country: None (occurrence: None)
  Receive Date: 20100916
  Receipt Date: 20100907
  Transmission Date: 20110219
  Serious: Yes (Death, Other)
  Sender: FDA-Public Use
  Company Number: US-AMGEN-QUU436705

PATIENT
  Sex: Female

DRUGS (18)
  1. NPLATE [Suspect]
     Indication: IDIOPATHIC THROMBOCYTOPENIC PURPURA
     Dates: start: 20091001
  2. CORTICOSTEROIDS [Concomitant]
     Dates: start: 20090805
  3. RITUXIMAB [Concomitant]
     Dates: start: 20090917
  4. CYCLOSPORINE [Concomitant]
     Route: 048
  5. AMBIEN [Concomitant]
     Route: 048
  6. CATAPRES-TTS-1 [Concomitant]
     Route: 061
  7. COLACE [Concomitant]
  8. HEPARIN [Concomitant]
  9. KLONOPIN [Concomitant]
     Route: 048
  10. LACTULOSE [Concomitant]
     Route: 048
  11. LANOXIN [Concomitant]
     Route: 048
  12. METOPROLOL TARTRATE [Concomitant]
     Route: 048
  13. PEPCID [Concomitant]
     Route: 048
  14. PERCOCET [Concomitant]
     Route: 048
  15. PHENERGAN [Concomitant]
     Route: 048
  16. PREDNISONE [Concomitant]
     Route: 048
  17. SEPTRA DS [Concomitant]
     Route: 048
  18. PLATELETS [Concomitant]
     Dates: start: 20091001

REACTIONS (10)
  - ANXIETY [None]
  - ASTHENIA [None]
  - BONE MARROW FAILURE [None]
  - DEATH [None]
  - DECREASED APPETITE [None]
  - ECCHYMOSIS [None]
  - FATIGUE [None]
  - FEELING ABNORMAL [None]
  - OEDEMA PERIPHERAL [None]
  - PETECHIAE [None]
